FAERS Safety Report 5299039-6 (Version None)
Quarter: 2007Q2

REPORT INFORMATION
  Report Type: 
  Country: None (occurrence: None)
  Receive Date: 20070412
  Receipt Date: 20070412
  Transmission Date: 20071010
  Serious: Yes (Life-Threatening, Other)
  Sender: FDA-Public Use
  Company Number: None

PATIENT
  Age: 64 Year
  Sex: Male
  Weight: 91.6266 kg

DRUGS (2)
  1. FLOMAX [Suspect]
     Indication: PROSTATIC DISORDER
     Dosage: 4 MG 1X PO
     Route: 048
     Dates: start: 20040411, end: 20070406
  2. FLOMAX [Suspect]
     Indication: SWELLING
     Dosage: 4 MG 1X PO
     Route: 048
     Dates: start: 20040411, end: 20070406

REACTIONS (3)
  - ANGIOEDEMA [None]
  - LIP SWELLING [None]
  - SWOLLEN TONGUE [None]
